FAERS Safety Report 10173714 (Version 1)
Quarter: 2014Q2

REPORT INFORMATION
  Report Type: Spontaneous
  Country: IN (occurrence: None)
  Receive Date: 20140513
  Receipt Date: 20140513
  Transmission Date: 20141212
  Serious: Yes (Other)
  Sender: FDA-Public Use
  Company Number: 2014P1003843

PATIENT
  Age: 33 Year
  Sex: Female

DRUGS (1)
  1. PHENYTOIN [Suspect]
     Route: 048

REACTIONS (10)
  - Intentional overdose [None]
  - Exposure via ingestion [None]
  - Loss of consciousness [None]
  - Convulsion [None]
  - Gangrene [None]
  - Status epilepticus [None]
  - No therapeutic response [None]
  - Toxicity to various agents [None]
  - Cerebral atrophy [None]
  - Cerebellar atrophy [None]
